FAERS Safety Report 4279979-7 (Version None)
Quarter: 2004Q1

REPORT INFORMATION
  Report Type: 
  Country: None (occurrence: None)
  Receive Date: 20040126
  Receipt Date: 20040119
  Transmission Date: 20041129
  Serious: Yes (Hospitalization)
  Sender: FDA-Public Use
  Company Number: 200410039BNE

PATIENT
  Age: 73 Year
  Sex: Male

DRUGS (9)
  1. ASPIRIN [Suspect]
     Indication: ANTICOAGULANT THERAPY
     Dosage: 75 MG, TOTAL DAILY, ORAL
     Route: 048
     Dates: start: 20010101, end: 20031226
  2. TAMSULOSIN [Concomitant]
  3. BUMETANIDE [Concomitant]
  4. RAMIPRIL [Concomitant]
  5. DOXAZOSIN MESYLATE [Concomitant]
  6. METFORMIN HCL [Concomitant]
  7. SPIRONOLACTONE [Concomitant]
  8. COMBIVENT [Concomitant]
  9. BECLOMETHASONE DIPROPIONATE [Concomitant]

REACTIONS (4)
  - DIZZINESS [None]
  - GASTRIC ULCER [None]
  - HAEMOGLOBIN DECREASED [None]
  - MELAENA [None]
